FAERS Safety Report 6105570-3 (Version None)
Quarter: 2009Q1

REPORT INFORMATION
  Report Type: 
  Country: None (occurrence: None)
  Receive Date: 20090304
  Receipt Date: 20090304
  Transmission Date: 20090719
  Serious: Yes (Life-Threatening, Hospitalization)
  Sender: FDA-Public Use
  Company Number: None

PATIENT
  Sex: Female
  Weight: 52 kg

DRUGS (3)
  1. PHENYTOIN [Suspect]
     Indication: CONVULSION PROPHYLAXIS
     Dosage: 300MG AT BEDTIME PO
     Route: 048
     Dates: start: 20090122, end: 20090223
  2. PHENYTOIN [Suspect]
     Indication: MENINGIOMA
     Dosage: 300MG AT BEDTIME PO
     Route: 048
     Dates: start: 20090122, end: 20090223
  3. PHENYTOIN [Suspect]
     Indication: POSTOPERATIVE CARE
     Dosage: 300MG AT BEDTIME PO
     Route: 048
     Dates: start: 20090122, end: 20090223

REACTIONS (6)
  - DRUG HYPERSENSITIVITY [None]
  - ERYTHEMA MULTIFORME [None]
  - MENTAL STATUS CHANGES [None]
  - RESPIRATORY FAILURE [None]
  - STEVENS-JOHNSON SYNDROME [None]
  - TOXIC EPIDERMAL NECROLYSIS [None]
